FAERS Safety Report 23327416 (Version 1)
Quarter: 2023Q4

REPORT INFORMATION
  Report Type: Spontaneous
  Country: RU (occurrence: RU)
  Receive Date: 20231221
  Receipt Date: 20231221
  Transmission Date: 20240110
  Serious: Yes (Hospitalization)
  Sender: FDA-Public Use
  Company Number: RU-LUNDBECK-DKLU3071699

PATIENT
  Age: 65 Year
  Sex: Female
  Weight: 69 kg

DRUGS (2)
  1. CIPRALEX [Suspect]
     Active Substance: ESCITALOPRAM OXALATE
     Indication: Generalised anxiety disorder
     Dosage: FILM-COATED TABLETS, IN THE MORNING
     Route: 048
     Dates: start: 20231124, end: 20231202
  2. ATARAX [Concomitant]
     Active Substance: HYDROXYZINE HYDROCHLORIDE
     Indication: Generalised anxiety disorder
     Dosage: AT NIGHT
     Route: 048
     Dates: start: 20231124, end: 20231202

REACTIONS (2)
  - Urinary retention [Recovering/Resolving]
  - Electrolyte depletion [Recovering/Resolving]
